FAERS Safety Report 13651472 (Version 5)
Quarter: 2017Q3

REPORT INFORMATION
  Report Type: Spontaneous
  Country: US (occurrence: US)
  Receive Date: 20170614
  Receipt Date: 20170818
  Transmission Date: 20171127
  Serious: Yes (Hospitalization, Other)
  Sender: FDA-Public Use
  Company Number: US-PFIZER INC-2016517225

PATIENT
  Age: 59 Year
  Sex: Female
  Weight: 81.63 kg

DRUGS (24)
  1. LYRICA [Suspect]
     Active Substance: PREGABALIN
     Indication: FIBROMYALGIA
     Dosage: 100 MG, 2X/DAY (ONCE IN MORNING AND ONCE IN NIGHT)
     Route: 048
     Dates: start: 20161012
  2. METFORMIN [Concomitant]
     Active Substance: METFORMIN HYDROCHLORIDE
     Dosage: 1000 MG, 2X/DAY (500 MG/2 TAB(S) )
     Route: 048
  3. LORAZEPAM. [Concomitant]
     Active Substance: LORAZEPAM
     Dosage: 1 MG, AS NEEDED
     Dates: start: 2012
  4. LORAZEPAM. [Concomitant]
     Active Substance: LORAZEPAM
     Dosage: UNK
     Dates: start: 20170523
  5. REMERON [Concomitant]
     Active Substance: MIRTAZAPINE
     Dosage: 60 MG, 1X/DAY  (30 MG/ 2 TAB(S) (QHS)
     Route: 048
     Dates: start: 20151001
  6. ERGOCALCIFEROL. [Concomitant]
     Active Substance: ERGOCALCIFEROL
     Dosage: 50000 IU, TWICE MONTHLY
     Route: 048
     Dates: start: 20120802
  7. RITALIN [Interacting]
     Active Substance: METHYLPHENIDATE HYDROCHLORIDE
     Indication: DEPRESSION
     Dosage: 5 MG, 1X/DAY
     Route: 048
     Dates: start: 20170502, end: 20170523
  8. CYMBALTA [Concomitant]
     Active Substance: DULOXETINE HYDROCHLORIDE
     Dosage: 120 MG, 1X/DAY (60 MG/2 CAPS )
     Route: 048
     Dates: start: 20110901
  9. ATORVASTATIN [Concomitant]
     Active Substance: ATORVASTATIN
     Dosage: 10 MG, 1X/DAY
     Route: 048
  10. LISINOPRIL. [Concomitant]
     Active Substance: LISINOPRIL
     Dosage: 20 MG, 1X/DAY
     Route: 048
     Dates: start: 20080902
  11. LANTUS [Concomitant]
     Active Substance: INSULIN GLARGINE
     Dosage: 63 IU, 1X/DAY
     Route: 058
  12. VICTOZA [Concomitant]
     Active Substance: LIRAGLUTIDE
     Dosage: 1.8 MG, 1X/DAY, (18 MG/3 ML SOLUTION(DAILY)
     Route: 058
     Dates: start: 20160122
  13. OMEPRAZOLE. [Concomitant]
     Active Substance: OMEPRAZOLE
     Dosage: 20 MG, 1X/DAY
     Route: 048
     Dates: start: 20120926
  14. FERRLECIT [Concomitant]
     Active Substance: SODIUM FERRIC GLUCONATE COMPLEX
     Dosage: 125 MG, WEEKLY (FOR 3 WKS)
     Route: 042
     Dates: start: 20150316
  15. VITAMIN B12 [Concomitant]
     Active Substance: CYANOCOBALAMIN
     Dosage: 1000 UG, 1X/DAY
     Route: 048
     Dates: start: 20120802
  16. ACETAMINOPHEN. [Concomitant]
     Active Substance: ACETAMINOPHEN
     Indication: BACK PAIN
     Dosage: 1000 MG, AS NEEDED  (500 MG /2 TAB(S) (3 TIMES A DAY)
     Route: 048
     Dates: start: 20150724
  17. ALBUTEROL. [Concomitant]
     Active Substance: ALBUTEROL
     Indication: WHEEZING
  18. ALBUTEROL. [Concomitant]
     Active Substance: ALBUTEROL
     Indication: CHEST DISCOMFORT
  19. ALBUTEROL. [Concomitant]
     Active Substance: ALBUTEROL
     Indication: COUGH
  20. LORAZEPAM. [Concomitant]
     Active Substance: LORAZEPAM
     Indication: ANXIETY
     Dosage: 1 MG, AS NEEDED (TID)
     Route: 048
     Dates: start: 20111028
  21. ALBUTEROL. [Concomitant]
     Active Substance: ALBUTEROL
     Indication: DYSPNOEA
     Dosage: 2 DF, AS NEEDED (EVERY 4 HOURS )
     Dates: start: 20160105
  22. HYDROCHLOROTHIAZIDE. [Concomitant]
     Active Substance: HYDROCHLOROTHIAZIDE
     Dosage: 25 MG, 1X/DAY
     Route: 048
     Dates: start: 20110901
  23. LYRICA [Interacting]
     Active Substance: PREGABALIN
     Indication: NEUROPATHY PERIPHERAL
     Dosage: 100 MG, 2X/DAY
     Route: 048
     Dates: end: 20170519
  24. LANTUS [Concomitant]
     Active Substance: INSULIN GLARGINE
     Indication: DIABETES MELLITUS
     Dosage: 66 IU, 1X/DAY
     Route: 058
     Dates: start: 20140120

REACTIONS (14)
  - Coma [Recovered/Resolved]
  - Aggression [Recovered/Resolved]
  - Somnolence [Unknown]
  - Drug interaction [Unknown]
  - Bipolar I disorder [Unknown]
  - Condition aggravated [Unknown]
  - Poor quality drug administered [Unknown]
  - Loss of consciousness [Unknown]
  - Irritability [Recovered/Resolved]
  - Dysarthria [Unknown]
  - Blood glucose decreased [Unknown]
  - Drug withdrawal syndrome [Unknown]
  - Pain [Unknown]
  - Product quality issue [Unknown]

NARRATIVE: CASE EVENT DATE: 20170522
